FAERS Safety Report 9160564 (Version 2)
Quarter: 2013Q2

REPORT INFORMATION
  Report Type: Report from Study
  Country: BE (occurrence: BE)
  Receive Date: 20130313
  Receipt Date: 20130603
  Transmission Date: 20140414
  Serious: Yes (Hospitalization)
  Sender: FDA-Public Use
  Company Number: BE-B.I. PHARMACEUTICALS,INC./RIDGEFIELD-2012-BL-00383BL

PATIENT
  Age: 85 Year
  Sex: Female

DRUGS (3)
  1. PRADAXA [Suspect]
     Indication: ATRIAL FIBRILLATION
     Dosage: 220 MG
     Dates: start: 201110
  2. MYSOLINE [Concomitant]
     Indication: TREMOR
  3. MEDROL [Concomitant]

REACTIONS (3)
  - Phlebitis [Unknown]
  - Pulmonary embolism [Unknown]
  - Pleural effusion [Unknown]
